FAERS Safety Report 8109648-4 (Version None)
Quarter: 2012Q1

REPORT INFORMATION
  Report Type: 
  Country: None (occurrence: None)
  Receive Date: 20120202
  Receipt Date: 20120117
  Transmission Date: 20120608
  Serious: No
  Sender: FDA-Public Use
  Company Number: US-AMGEN-USASP2011048624

PATIENT
  Sex: Female

DRUGS (5)
  1. ENBREL [Suspect]
     Indication: RHEUMATOID ARTHRITIS
     Dosage: 50 MG, QWK
     Route: 058
  2. SYNTHROID [Concomitant]
     Dosage: UNK
  3. PREDNISONE TAB [Concomitant]
     Dosage: UNK
  4. NEURONTIN [Concomitant]
     Dosage: UNK
  5. BETA BLOCKING AGENTS [Concomitant]
     Dosage: UNK

REACTIONS (7)
  - RASH [None]
  - NEURODERMATITIS [None]
  - WEIGHT DECREASED [None]
  - FOOT DEFORMITY [None]
  - CYSTITIS [None]
  - DRY EYE [None]
  - MYALGIA [None]
